FAERS Safety Report 4865597-6 (Version None)
Quarter: 2005Q4

REPORT INFORMATION
  Report Type: 
  Country: None (occurrence: None)
  Receive Date: 20051220
  Receipt Date: 20051207
  Transmission Date: 20060501
  Serious: Yes (Other)
  Sender: FDA-Public Use
  Company Number: 2005167073

PATIENT
  Age: 25 Year
  Sex: Female
  Weight: 65.7716 kg

DRUGS (8)
  1. NEURONTIN [Suspect]
     Indication: FIBROMYALGIA
     Dosage: 400 MG (200 MG, 2 IN 1 D), ORAL
     Route: 048
     Dates: start: 19980101, end: 19980101
  2. CORTEF [Suspect]
     Indication: ILL-DEFINED DISORDER
     Dates: start: 20040101
  3. ACIPHEX [Concomitant]
  4. XANAX [Concomitant]
  5. ZANAFLEX [Concomitant]
  6. ZOLOFT [Concomitant]
  7. AMBIEN [Concomitant]
  8. AMITRIPTYLINE (AMITRIPTYLINE) [Concomitant]

REACTIONS (3)
  - ADRENAL INSUFFICIENCY [None]
  - DRUG INEFFECTIVE [None]
  - WEIGHT INCREASED [None]
